FAERS Safety Report 7558255-0 (Version None)
Quarter: 2011Q2

REPORT INFORMATION
  Report Type: 
  Country: None (occurrence: None)
  Receive Date: 20110620
  Receipt Date: 20110606
  Transmission Date: 20111010
  Serious: Yes (Death)
  Sender: FDA-Public Use
  Company Number: IL-ACTELION-A-CH2010-41462

PATIENT
  Age: 4 Year
  Sex: Male

DRUGS (2)
  1. SILDENAFIL CITRATE [Concomitant]
  2. TRACLEER [Suspect]
     Indication: PULMONARY HYPERTENSION
     Dosage: 62.5 MG, BID
     Route: 048
     Dates: start: 20080601

REACTIONS (1)
  - RESPIRATORY FAILURE [None]
